FAERS Safety Report 6066738-8 (Version None)
Quarter: 2009Q1

REPORT INFORMATION
  Report Type: 
  Country: None (occurrence: None)
  Receive Date: 20090205
  Receipt Date: 20080305
  Transmission Date: 20090719
  Serious: No
  Sender: FDA-Public Use
  Company Number: US-ABBOTT-08P-163-0441452-00

PATIENT
  Sex: Female
  Weight: 72.64 kg

DRUGS (4)
  1. VICODIN [Suspect]
     Indication: BACK PAIN
  2. TYLOX [Suspect]
     Indication: BACK PAIN
     Route: 048
  3. TYLOX [Suspect]
     Route: 048
  4. WARFARIN SODIUM [Concomitant]
     Indication: DRUG USE FOR UNKNOWN INDICATION

REACTIONS (1)
  - DRUG INEFFECTIVE [None]
